FAERS Safety Report 24780005 (Version 6)
Quarter: 2025Q3

REPORT INFORMATION
  Report Type: Report from Study
  Country: JP (occurrence: JP)
  Receive Date: 20241227
  Receipt Date: 20250808
  Transmission Date: 20251021
  Serious: Yes (Hospitalization, Other)
  Sender: TAKEDA
  Company Number: JP-TAKEDA-2022TJP078847

PATIENT
  Age: 60 Year
  Sex: Male
  Weight: 54 kg

DRUGS (30)
  1. TEDUGLUTIDE [Suspect]
     Active Substance: TEDUGLUTIDE
     Indication: Short-bowel syndrome
     Dates: start: 20211217, end: 20230611
  2. TEDUGLUTIDE [Suspect]
     Active Substance: TEDUGLUTIDE
     Dates: start: 20230621, end: 20231025
  3. TEDUGLUTIDE [Suspect]
     Active Substance: TEDUGLUTIDE
     Dates: start: 20231026, end: 20231026
  4. TEDUGLUTIDE [Suspect]
     Active Substance: TEDUGLUTIDE
     Dates: start: 20240217, end: 20240815
  5. TEDUGLUTIDE [Suspect]
     Active Substance: TEDUGLUTIDE
  6. TEDUGLUTIDE [Suspect]
     Active Substance: TEDUGLUTIDE
  7. FLAGYL [Suspect]
     Active Substance: METRONIDAZOLE\METRONIDAZOLE HYDROCHLORIDE
     Indication: Short-bowel syndrome
  8. VONOPRAZAN FUMARATE [Concomitant]
     Active Substance: VONOPRAZAN FUMARATE
  9. Onepal no.2 [Concomitant]
     Indication: Short-bowel syndrome
  10. ALBUMIN TANNATE [Concomitant]
     Active Substance: ALBUMIN TANNATE
     Indication: Short-bowel syndrome
  11. ALUMINUM SILICATE [Concomitant]
     Active Substance: ALUMINUM SILICATE
     Indication: Short-bowel syndrome
  12. MIYA-BM [Concomitant]
     Active Substance: CLOSTRIDIUM BUTYRICUM SPORES STRAIN M-55
     Indication: Short-bowel syndrome
  13. RIBOFLAVIN [Concomitant]
     Active Substance: RIBOFLAVIN
  14. BIOTIN [Concomitant]
     Active Substance: BIOTIN
  15. NITROFURANTOIN [Concomitant]
     Active Substance: NITROFURANTOIN
  16. SHAKUYAKUKANZOTO [Concomitant]
     Active Substance: HERBALS
  17. ZOLPIDEM TARTRATE [Concomitant]
     Active Substance: ZOLPIDEM TARTRATE
  18. S.m. [Concomitant]
  19. LOSARTAN [Concomitant]
     Active Substance: LOSARTAN
  20. ASELEND [Concomitant]
  21. AMINO ACIDS\DEXTROSE\ELECTROLYTES NOS\MINERALS\VITAMINS [Concomitant]
     Active Substance: AMINO ACIDS\DEXTROSE\ELECTROLYTES NOS\MINERALS\VITAMINS
     Indication: Short-bowel syndrome
  22. RIBOFLAVIN [Concomitant]
     Active Substance: RIBOFLAVIN
     Indication: Short-bowel syndrome
  23. BIOTIN [Concomitant]
     Active Substance: BIOTIN
     Indication: Short-bowel syndrome
  24. AMINO ACIDS\CARBOHYDRATES\MINERALS\SOYBEAN OIL\VITAMINS [Concomitant]
     Active Substance: AMINO ACIDS\CARBOHYDRATES\MINERALS\SOYBEAN OIL\VITAMINS
     Indication: Short-bowel syndrome
  25. UNSPECIFIED INGREDIENT [Concomitant]
     Active Substance: UNSPECIFIED INGREDIENT
     Indication: Short-bowel syndrome
  26. NEXIUM [Concomitant]
     Active Substance: ESOMEPRAZOLE MAGNESIUM
  27. LOSARTAN POTASSIUM [Concomitant]
     Active Substance: LOSARTAN POTASSIUM
  28. TAMSULOSIN HYDROCHLORIDE [Concomitant]
     Active Substance: TAMSULOSIN HYDROCHLORIDE
  29. SKYRIZI [Concomitant]
     Active Substance: RISANKIZUMAB-RZAA
     Indication: Short-bowel syndrome
  30. SKYRIZI [Concomitant]
     Active Substance: RISANKIZUMAB-RZAA
     Indication: Short-bowel syndrome

REACTIONS (15)
  - Weight decreased [Recovered/Resolved]
  - Device related infection [Recovered/Resolved]
  - Malaise [Recovering/Resolving]
  - Crohn^s disease [Recovered/Resolved]
  - Nausea [Recovered/Resolved]
  - Vomiting [Recovered/Resolved]
  - Intestinal obstruction [Recovered/Resolved]
  - Injection site swelling [Recovered/Resolved]
  - Muscular weakness [Recovered/Resolved]
  - Pyrexia [Recovered/Resolved]
  - Face oedema [Recovering/Resolving]
  - Nausea [Recovering/Resolving]
  - Decreased appetite [Recovered/Resolved]
  - Oedema peripheral [Recovering/Resolving]
  - Abdominal pain [Recovered/Resolved]

NARRATIVE: CASE EVENT DATE: 20220617
